FAERS Safety Report 20219445 (Version 1)
Quarter: 2021Q4

REPORT INFORMATION
  Report Type: Spontaneous
  Country: PT (occurrence: None)
  Receive Date: 20211222
  Receipt Date: 20211222
  Transmission Date: 20220303
  Serious: Yes (Hospitalization)
  Sender: FDA-Public Use
  Company Number: PT-Eisai Medical Research-EC-2021-105088

PATIENT
  Age: 10 Year
  Sex: Female

DRUGS (4)
  1. PERAMPANEL [Suspect]
     Active Substance: PERAMPANEL
     Indication: Seizure
     Dosage: DOSE AND FREQUENCY NOT PROVIDED
     Route: 048
  2. LEVETIRACETAM [Suspect]
     Active Substance: LEVETIRACETAM
     Indication: Seizure
     Dosage: DOSE AND FREQUENCY NOT PROVIDED
     Route: 048
  3. PHENOBARBITAL [Suspect]
     Active Substance: PHENOBARBITAL
     Indication: Seizure
     Dosage: DOSE AND FREQUENCY NOT PROVIDED
     Route: 048
  4. PHENYTOIN [Suspect]
     Active Substance: PHENYTOIN
     Indication: Seizure
     Dosage: DOSE AND FREQUENCY NOT PROVIDED
     Route: 048

REACTIONS (1)
  - Drug reaction with eosinophilia and systemic symptoms [Recovered/Resolved]
